FAERS Safety Report 9373070 (Version 1)
Quarter: 2013Q2

REPORT INFORMATION
  Report Type: Spontaneous
  Country: US (occurrence: US)
  Receive Date: 20130627
  Receipt Date: 20130627
  Transmission Date: 20140414
  Serious: Yes (Hospitalization, Other)
  Sender: FDA-Public Use
  Company Number: US-INCYTE CORPORATION-2013IN001342

PATIENT
  Age: 70 Year
  Sex: Female

DRUGS (2)
  1. JAKAFI [Suspect]
     Dosage: 10 MG, BID
  2. JAKAFI [Suspect]
     Dosage: 05 MG, BID

REACTIONS (21)
  - Renal failure acute [None]
  - Tachycardia [None]
  - Withdrawal syndrome [None]
  - Splenic infarction [None]
  - Tumour lysis syndrome [None]
  - Pyrexia [None]
  - Contusion [Unknown]
  - Abdominal pain [Recovered/Resolved]
  - Dyspnoea [Unknown]
  - Diarrhoea [Recovered/Resolved]
  - Gout [Unknown]
  - Oedema peripheral [Unknown]
  - Hyperkalaemia [Recovered/Resolved]
  - Hypocalcaemia [Unknown]
  - Hyperphosphataemia [Recovered/Resolved]
  - Hyperuricaemia [Recovered/Resolved]
  - Blood lactate dehydrogenase increased [Unknown]
  - Splenomegaly [Unknown]
  - Platelet count decreased [Unknown]
  - Haemoglobin decreased [Unknown]
  - Urinary tract infection [Unknown]
